FAERS Safety Report 7330791-1 (Version None)
Quarter: 2011Q1

REPORT INFORMATION
  Report Type: 
  Country: None (occurrence: None)
  Receive Date: 20110304
  Receipt Date: 20110303
  Transmission Date: 20110831
  Serious: Yes (Other)
  Sender: FDA-Public Use
  Company Number: US-PFIZER INC-2010034449

PATIENT
  Sex: Female
  Weight: 45 kg

DRUGS (6)
  1. CLARITIN [Concomitant]
     Dosage: 10 MG, 1X/DAY
  2. DILANTIN [Suspect]
     Indication: CONVULSION
     Dosage: 150 MG, 2X/DAY
     Dates: start: 20090101, end: 20090128
  3. KEPPRA [Concomitant]
     Dosage: 1000 MG, 2X/DAY
  4. TOPAMAX [Concomitant]
     Indication: CONVULSION
     Dosage: 200 MG, 2X/DAY
  5. VITAMIN B6 [Concomitant]
     Dosage: 25 MG, 2X/DAY
  6. FLONASE [Concomitant]
     Dosage: UNK

REACTIONS (1)
  - STEVENS-JOHNSON SYNDROME [None]
